FAERS Safety Report 8510758 (Version 2)
Quarter: 2014Q1

REPORT INFORMATION
  Report Type: Spontaneous
  Country: US (occurrence: None)
  Receive Date: 20120321
  Receipt Date: 20130318
  Transmission Date: 20141002
  Serious: Yes (Other)
  Sender: FDA-Public Use
  Company Number: 2011SP054734

PATIENT
  Age: 53 Year
  Sex: Female

DRUGS (2)
  1. PEG-INTRON (PEGINTERFERON ALFA-2B) POWDER FOR INJECTION [Suspect]
     Indication: HEPATITIS C
     Dosage: 80 MCG;QW
     Dates: start: 2008, end: 2008
  2. MK-8908 (RIBAVIRIN) CAPSULE [Suspect]
     Indication: PRODUCT USED FOR UNKNOWN INDICATION

REACTIONS (10)
  - Supraventricular tachycardia [None]
  - Cystitis [None]
  - Pain [None]
  - Incorrect dose administered [None]
  - Visual impairment [None]
  - Depression [None]
  - Chills [None]
  - Cystitis [None]
  - Visual impairment [None]
  - Influenza like illness [None]
